FAERS Safety Report 15877677 (Version 8)
Quarter: 2019Q3

REPORT INFORMATION
  Report Type: Report from Study
  Country: US (occurrence: US)
  Receive Date: 20190128
  Receipt Date: 20190924
  Transmission Date: 20191004
  Serious: Yes (Other)
  Sender: FDA-Public Use
  Company Number: US-TESARO-2019-TSO00398-US

PATIENT
  Age: 69 Year
  Sex: Female

DRUGS (5)
  1. NIRAPARIB [Suspect]
     Active Substance: NIRAPARIB
     Dosage: 100 MG, QD
  2. NIRAPARIB [Suspect]
     Active Substance: NIRAPARIB
     Dosage: 200 MG, QD IN PM
     Route: 048
     Dates: start: 20181217, end: 20190120
  3. TYLENOL [Concomitant]
     Active Substance: ACETAMINOPHEN
  4. NIRAPARIB [Suspect]
     Active Substance: NIRAPARIB
     Dosage: 100 MG, QPM WITHOUT FOOD
     Route: 048
     Dates: start: 20190107
  5. ATENOLOL. [Concomitant]
     Active Substance: ATENOLOL

REACTIONS (22)
  - Feeling abnormal [Not Recovered/Not Resolved]
  - Platelet count decreased [Not Recovered/Not Resolved]
  - Malabsorption [Unknown]
  - Vomiting [Unknown]
  - Intestinal resection [Unknown]
  - Gastrooesophageal reflux disease [Not Recovered/Not Resolved]
  - Balance disorder [Unknown]
  - Blood count abnormal [Unknown]
  - Tachycardia [Not Recovered/Not Resolved]
  - Blood pressure increased [Unknown]
  - Insomnia [Not Recovered/Not Resolved]
  - Constipation [Unknown]
  - Arthralgia [Not Recovered/Not Resolved]
  - Abdominal pain upper [Not Recovered/Not Resolved]
  - Gastrointestinal hypomotility [Unknown]
  - Blood creatine increased [Unknown]
  - Anaemia [Unknown]
  - Renal impairment [Not Recovered/Not Resolved]
  - Neuropathy peripheral [Unknown]
  - Arthritis [Not Recovered/Not Resolved]
  - Tooth disorder [Unknown]
  - Headache [Unknown]

NARRATIVE: CASE EVENT DATE: 201901
